FAERS Safety Report 18161412 (Version 1)
Quarter: 2020Q3

REPORT INFORMATION
  Report Type: Report from Study
  Country: NO (occurrence: NO)
  Receive Date: 20200818
  Receipt Date: 20200818
  Transmission Date: 20201103
  Serious: Yes (Death, Hospitalization)
  Sender: FDA-Public Use
  Company Number: NVSC2020NO220484

PATIENT
  Sex: Female

DRUGS (1)
  1. BYL719 [Suspect]
     Active Substance: ALPELISIB
     Indication: PRODUCT USED FOR UNKNOWN INDICATION
     Dosage: 300 MG, QD (ONCE DAILY)
     Route: 065
     Dates: start: 20200217

REACTIONS (6)
  - Metastases to central nervous system [Fatal]
  - General physical health deterioration [Fatal]
  - Pneumonia [Fatal]
  - Blepharitis [Recovered/Resolved]
  - Malignant neoplasm progression [Fatal]
  - Erythema [Recovered/Resolved]

NARRATIVE: CASE EVENT DATE: 2020
